FAERS Safety Report 12773338 (Version 1)
Quarter: 2016Q3

REPORT INFORMATION
  Report Type: Spontaneous
  Country: US (occurrence: US)
  Receive Date: 20160922
  Receipt Date: 20160922
  Transmission Date: 20161109
  Serious: No
  Sender: FDA-Public Use
  Company Number: US-BANPHARM-20164660

PATIENT
  Age: 89 Year
  Sex: Female
  Weight: 65.77 kg

DRUGS (9)
  1. OMEGA 3 UNSPECIFIED [Concomitant]
     Dosage: 6 DF, QD,
  2. HEART MEDICATION UNSPECIFIED [Concomitant]
     Dosage: 120 MG, QD,
  3. ZYRTEC [Suspect]
     Active Substance: CETIRIZINE HYDROCHLORIDE
     Indication: MULTIPLE ALLERGIES
     Dosage: 1 DF, QD,
     Route: 048
  4. VITAMIN D UNSPECIFIED [Concomitant]
     Dosage: 3 DF, QD,
  5. OCUVITE [Concomitant]
     Active Substance: VITAMINS
     Dosage: 2 DF, QD,
  6. WATER PILL UNSPECIFIED [Concomitant]
     Dosage: 20 MG, QD,
  7. MAGNESIUM UNSPECIFIED [Concomitant]
     Dosage: 2 DF, QD,
  8. THYROXINE [Concomitant]
     Active Substance: LEVOTHYROXINE
     Dosage: 100 MG, QD,
  9. MULTI VITAMIN UNSPECIFIED [Concomitant]
     Dosage: 2 DF, QD,

REACTIONS (1)
  - Drug effect incomplete [Unknown]
